FAERS Safety Report 4958837-6 (Version None)
Quarter: 2006Q1

REPORT INFORMATION
  Report Type: 
  Country: None (occurrence: None)
  Receive Date: 20060324
  Receipt Date: 20060320
  Transmission Date: 20060701
  Serious: Yes (Hospitalization, Other)
  Sender: FDA-Public Use
  Company Number: HQWYE411120MAR06

PATIENT
  Age: 5 Year
  Sex: Female

DRUGS (3)
  1. ADVIL [Suspect]
     Indication: PYREXIA
     Dosage: ONE DOSE FOR 20 KG EVERY 6 HOURS ALTERNATING WITH DOLIPRANE ORAL
     Route: 048
     Dates: start: 20051231, end: 20060101
  2. ACETAMINOPHEN [Concomitant]
  3. AMOXICILLIN TRIHYDRATE [Concomitant]

REACTIONS (6)
  - ANOREXIA [None]
  - CONDITION AGGRAVATED [None]
  - FATIGUE [None]
  - MENINGITIS [None]
  - MYALGIA [None]
  - VOMITING [None]
